FAERS Safety Report 11199819 (Version 3)
Quarter: 2015Q4

REPORT INFORMATION
  Report Type: Report from Study
  Country: US (occurrence: US)
  Receive Date: 20150618
  Receipt Date: 20151124
  Transmission Date: 20160304
  Serious: Yes (Hospitalization, Other)
  Sender: FDA-Public Use
  Company Number: US-ALEXION PHARMACEUTICALS INC.-A201502181

PATIENT
  Sex: Female

DRUGS (1)
  1. SOLIRIS [Suspect]
     Active Substance: ECULIZUMAB
     Indication: HAEMOLYTIC URAEMIC SYNDROME
     Dosage: 1200 MG, UNK
     Route: 042

REACTIONS (5)
  - Arthralgia [Not Recovered/Not Resolved]
  - Anaemia [Unknown]
  - Haemoglobin decreased [Recovering/Resolving]
  - Compartment syndrome [Unknown]
  - Necrosis of artery [Not Recovered/Not Resolved]

NARRATIVE: CASE EVENT DATE: 20150601
